FAERS Safety Report 15994927 (Version 2)
Quarter: 2019Q1

REPORT INFORMATION
  Report Type: Report from Study
  Country: PE (occurrence: PE)
  Receive Date: 20190222
  Receipt Date: 20190320
  Transmission Date: 20190418
  Serious: Yes (Hospitalization)
  Sender: FDA-Public Use
  Company Number: PE-SA-2019SA045162

PATIENT
  Age: 82 Year
  Sex: Female

DRUGS (1)
  1. HYDROCHLOROTHIAZIDE/IRBESARTAN [Suspect]
     Active Substance: HYDROCHLOROTHIAZIDE\IRBESARTAN
     Indication: HYPERTENSION
     Dosage: 300MG / 12.5MG (IRBESARTAN + HYDROCHLOROTHIAZIDE), QD
     Route: 048
     Dates: start: 1999

REACTIONS (5)
  - Dizziness [Recovered/Resolved]
  - Osteoporosis [Not Recovered/Not Resolved]
  - Spinal fracture [Recovered/Resolved]
  - Gait inability [Recovered/Resolved]
  - Fall [Unknown]

NARRATIVE: CASE EVENT DATE: 20171201
